FAERS Safety Report 12770472 (Version 1)
Quarter: 2016Q3

REPORT INFORMATION
  Report Type: Spontaneous
  Country: US (occurrence: US)
  Receive Date: 20160922
  Receipt Date: 20160922
  Transmission Date: 20161109
  Serious: No
  Sender: FDA-Public Use
  Company Number: US-AUROBINDO-AUR-APU-2016-10525

PATIENT

DRUGS (1)
  1. METHADONE HYDROCHLORIDE TABLET USP 10MG [Suspect]
     Active Substance: METHADONE HYDROCHLORIDE
     Indication: PRODUCT USED FOR UNKNOWN INDICATION
     Dosage: UNK
     Route: 065
     Dates: start: 20160801

REACTIONS (2)
  - Withdrawal syndrome [Unknown]
  - Product substitution issue [Unknown]
